FAERS Safety Report 10049513 (Version 1)
Quarter: 2014Q1

REPORT INFORMATION
  Report Type: Spontaneous
  Country: US (occurrence: None)
  Receive Date: 20140331
  Receipt Date: 20140331
  Transmission Date: 20141002
  Serious: Yes (Death)
  Sender: FDA-Public Use
  Company Number: None

PATIENT
  Age: 77 Year
  Sex: Male
  Weight: 97 kg

DRUGS (2)
  1. RIVAROXABAN [Suspect]
     Indication: ATRIAL FIBRILLATION
     Dosage: 1 TAB QD ORAL
     Route: 048
     Dates: start: 20131219, end: 20140109
  2. ASPIRIN 81 MG [Suspect]
     Indication: CARDIOVASCULAR EVENT PROPHYLAXIS
     Dosage: 1 TAB QD ORAL YEARS
     Route: 048

REACTIONS (4)
  - Epistaxis [None]
  - Haemoglobin decreased [None]
  - Gastrointestinal ulcer haemorrhage [None]
  - Blood creatinine increased [None]
